FAERS Safety Report 12250081 (Version 1)
Quarter: 2016Q2

REPORT INFORMATION
  Report Type: Spontaneous
  Country: US (occurrence: US)
  Receive Date: 20160408
  Receipt Date: 20160408
  Transmission Date: 20160815
  Serious: Yes (Other)
  Sender: FDA-Public Use
  Company Number: US-TEVA-649445USA

PATIENT
  Sex: Female
  Weight: 68.1 kg

DRUGS (1)
  1. CLONAZEPAM. [Suspect]
     Active Substance: CLONAZEPAM
     Indication: ANXIETY
     Route: 065
     Dates: start: 1998, end: 201509

REACTIONS (10)
  - Obsessive-compulsive disorder [Unknown]
  - Disturbance in attention [Unknown]
  - Loss of employment [Unknown]
  - Coordination abnormal [Unknown]
  - Drug withdrawal syndrome [Unknown]
  - Seizure [Unknown]
  - Intentional product misuse [Unknown]
  - Suicidal ideation [Unknown]
  - Sleep disorder [Unknown]
  - Constipation [Unknown]

NARRATIVE: CASE EVENT DATE: 2015
